FAERS Safety Report 7803243-X (Version None)
Quarter: 2011Q4

REPORT INFORMATION
  Report Type: 
  Country: None (occurrence: None)
  Receive Date: 20111007
  Receipt Date: 20110929
  Transmission Date: 20120403
  Serious: Yes (Hospitalization, Other)
  Sender: FDA-Public Use
  Company Number: AU-CEPHALON-2011002955

PATIENT
  Sex: Male
  Weight: 72 kg

DRUGS (6)
  1. ACETAMINOPHEN [Concomitant]
     Dates: start: 20100101
  2. IRBESARTAN + HYDROCHLOROTHIAZIDE [Concomitant]
     Dates: start: 19900101
  3. ALLOPURINOL [Concomitant]
     Dates: start: 19800101
  4. TREANDA [Suspect]
     Indication: NON-HODGKIN'S LYMPHOMA
     Route: 041
     Dates: start: 20101206, end: 20110601
  5. MAXOLON [Concomitant]
     Dates: start: 20100101
  6. RITUXIMAB [Suspect]
     Indication: NON-HODGKIN'S LYMPHOMA
     Route: 042
     Dates: start: 20101206, end: 20110601

REACTIONS (1)
  - ABDOMINAL PAIN [None]
